FAERS Safety Report 23084939 (Version 7)
Quarter: 2025Q2

REPORT INFORMATION
  Report Type: Spontaneous
  Country: CA (occurrence: CA)
  Receive Date: 20231019
  Receipt Date: 20250624
  Transmission Date: 20250716
  Serious: Yes (Hospitalization, Other)
  Sender: SANDOZ
  Company Number: CA-002147023-NVSC2023CA023717

PATIENT
  Age: 75 Year
  Sex: Female
  Weight: 70 kg

DRUGS (174)
  1. AMOXICILLIN [Suspect]
     Active Substance: AMOXICILLIN
     Indication: Sinusitis
     Route: 065
  2. AMOXICILLIN [Suspect]
     Active Substance: AMOXICILLIN
     Route: 065
  3. AMOXICILLIN TRIHYDRATE [Suspect]
     Active Substance: AMOXICILLIN
     Indication: Sinusitis
     Route: 065
  4. ATORVASTATIN [Suspect]
     Active Substance: ATORVASTATIN
     Indication: Dyslipidaemia
     Route: 065
  5. ATORVASTATIN [Suspect]
     Active Substance: ATORVASTATIN
     Indication: Dyslipidaemia
     Route: 065
  6. ATORVASTATIN CALCIUM [Suspect]
     Active Substance: ATORVASTATIN CALCIUM
     Indication: Dyslipidaemia
     Route: 065
  7. ATORVASTATIN CALCIUM [Suspect]
     Active Substance: ATORVASTATIN CALCIUM
     Route: 065
  8. ATORVASTATIN CALCIUM [Suspect]
     Active Substance: ATORVASTATIN CALCIUM
     Indication: Dyslipidaemia
     Route: 065
  9. ACETAMINOPHEN [Suspect]
     Active Substance: ACETAMINOPHEN
     Indication: Product used for unknown indication
     Route: 065
  10. ACETAMINOPHEN [Suspect]
     Active Substance: ACETAMINOPHEN
     Indication: Rhinitis
     Route: 065
  11. ACETAMINOPHEN [Suspect]
     Active Substance: ACETAMINOPHEN
     Route: 065
  12. ACETAMINOPHEN [Suspect]
     Active Substance: ACETAMINOPHEN
     Route: 065
  13. ACETAMINOPHEN [Suspect]
     Active Substance: ACETAMINOPHEN
     Route: 065
  14. ACETAMINOPHEN [Suspect]
     Active Substance: ACETAMINOPHEN
     Route: 065
  15. ACETAMINOPHEN [Suspect]
     Active Substance: ACETAMINOPHEN
     Route: 065
  16. ACETAMINOPHEN [Suspect]
     Active Substance: ACETAMINOPHEN
     Route: 065
  17. ACETAMINOPHEN [Suspect]
     Active Substance: ACETAMINOPHEN
     Route: 065
  18. ADVIL [Suspect]
     Active Substance: IBUPROFEN
     Indication: Arthralgia
     Route: 065
  19. AZOPT [Suspect]
     Active Substance: BRINZOLAMIDE
     Indication: Glaucoma
     Route: 047
  20. BRINZOLAMIDE [Suspect]
     Active Substance: BRINZOLAMIDE
     Route: 047
  21. BRINZOLAMIDE [Suspect]
     Active Substance: BRINZOLAMIDE
     Indication: Glaucoma
     Route: 065
  22. BRINZOLAMIDE\TIMOLOL [Suspect]
     Active Substance: BRINZOLAMIDE\TIMOLOL
     Indication: Glaucoma
     Route: 047
  23. BRINZOLAMIDE\TIMOLOL [Suspect]
     Active Substance: BRINZOLAMIDE\TIMOLOL
     Route: 047
  24. BRINZOLAMIDE\TIMOLOL [Suspect]
     Active Substance: BRINZOLAMIDE\TIMOLOL
     Route: 047
  25. BRINZOLAMIDE\TIMOLOL [Suspect]
     Active Substance: BRINZOLAMIDE\TIMOLOL
     Route: 047
  26. BRINZOLAMIDE\TIMOLOL [Suspect]
     Active Substance: BRINZOLAMIDE\TIMOLOL
     Indication: Glaucoma
     Route: 065
  27. BRINZOLAMIDE\TIMOLOL [Suspect]
     Active Substance: BRINZOLAMIDE\TIMOLOL
     Route: 065
  28. BRINZOLAMIDE\TIMOLOL [Suspect]
     Active Substance: BRINZOLAMIDE\TIMOLOL
     Route: 065
  29. BRINZOLAMIDE\TIMOLOL [Suspect]
     Active Substance: BRINZOLAMIDE\TIMOLOL
     Route: 065
  30. BRINZOLAMIDE\TIMOLOL [Suspect]
     Active Substance: BRINZOLAMIDE\TIMOLOL
     Indication: Glaucoma
     Route: 065
  31. BRINZOLAMIDE\TIMOLOL [Suspect]
     Active Substance: BRINZOLAMIDE\TIMOLOL
     Indication: Glaucoma
     Route: 047
  32. BRINZOLAMIDE\TIMOLOL [Suspect]
     Active Substance: BRINZOLAMIDE\TIMOLOL
     Route: 047
  33. BRINZOLAMIDE\TIMOLOL [Suspect]
     Active Substance: BRINZOLAMIDE\TIMOLOL
     Route: 047
  34. BRINZOLAMIDE\TIMOLOL [Suspect]
     Active Substance: BRINZOLAMIDE\TIMOLOL
     Indication: Glaucoma
     Route: 065
  35. BRINZOLAMIDE\TIMOLOL [Suspect]
     Active Substance: BRINZOLAMIDE\TIMOLOL
     Route: 065
  36. BRINZOLAMIDE\TIMOLOL [Suspect]
     Active Substance: BRINZOLAMIDE\TIMOLOL
     Route: 065
  37. BRINZOLAMIDE\TIMOLOL [Suspect]
     Active Substance: BRINZOLAMIDE\TIMOLOL
     Route: 047
  38. BRINZOLAMIDE\TIMOLOL [Suspect]
     Active Substance: BRINZOLAMIDE\TIMOLOL
     Route: 047
  39. CALCIUM CARBONATE [Suspect]
     Active Substance: CALCIUM CARBONATE
     Route: 065
  40. CALCIUM CARBONATE [Suspect]
     Active Substance: CALCIUM CARBONATE
     Route: 065
  41. CALCIUM CARBONATE [Suspect]
     Active Substance: CALCIUM CARBONATE
     Route: 065
  42. CALCIUM CARBONATE [Suspect]
     Active Substance: CALCIUM CARBONATE
     Indication: Product used for unknown indication
     Route: 065
  43. CALCIUM CARBONATE [Suspect]
     Active Substance: CALCIUM CARBONATE
     Route: 065
  44. CHOLECALCIFEROL [Suspect]
     Active Substance: CHOLECALCIFEROL
     Indication: Product used for unknown indication
     Route: 065
  45. CHOLECALCIFEROL [Suspect]
     Active Substance: CHOLECALCIFEROL
     Route: 065
  46. CLONAZEPAM [Suspect]
     Active Substance: CLONAZEPAM
     Indication: Product used for unknown indication
     Route: 065
  47. CLONAZEPAM [Suspect]
     Active Substance: CLONAZEPAM
     Route: 065
  48. CLONAZEPAM [Suspect]
     Active Substance: CLONAZEPAM
     Route: 065
  49. CLONAZEPAM [Suspect]
     Active Substance: CLONAZEPAM
     Route: 065
  50. CLONAZEPAM [Suspect]
     Active Substance: CLONAZEPAM
     Route: 065
  51. CLONAZEPAM [Suspect]
     Active Substance: CLONAZEPAM
     Route: 065
  52. CLONAZEPAM [Suspect]
     Active Substance: CLONAZEPAM
     Route: 065
  53. DICLOFENAC [Suspect]
     Active Substance: DICLOFENAC
     Indication: Product used for unknown indication
     Route: 047
  54. DICLOFENAC [Suspect]
     Active Substance: DICLOFENAC
     Indication: Arthralgia
     Route: 065
  55. DICLOFENAC [Suspect]
     Active Substance: DICLOFENAC
     Route: 065
  56. DICLOFENAC SODIUM [Suspect]
     Active Substance: DICLOFENAC SODIUM
     Route: 047
  57. DICLOFENAC SODIUM [Suspect]
     Active Substance: DICLOFENAC SODIUM
     Indication: Arthralgia
     Route: 065
  58. DICLOFENAC SODIUM [Suspect]
     Active Substance: DICLOFENAC SODIUM
     Route: 065
  59. DEXPANTHENOL [Suspect]
     Active Substance: DEXPANTHENOL
     Indication: Product used for unknown indication
     Route: 065
  60. ESTRADIOL [Suspect]
     Active Substance: ESTRADIOL
     Indication: Arthralgia
     Route: 065
  61. ESTRADIOL [Suspect]
     Active Substance: ESTRADIOL
     Indication: Menopausal symptoms
     Route: 065
  62. ESTRADIOL [Suspect]
     Active Substance: ESTRADIOL
     Route: 065
  63. ESTRADIOL [Suspect]
     Active Substance: ESTRADIOL
     Route: 065
  64. ESTRADIOL [Suspect]
     Active Substance: ESTRADIOL
     Route: 065
  65. ERGOCALCIFEROL [Suspect]
     Active Substance: ERGOCALCIFEROL
     Indication: Product used for unknown indication
     Route: 065
  66. FOLIC ACID [Suspect]
     Active Substance: FOLIC ACID
     Indication: Product used for unknown indication
     Route: 065
  67. GABAPENTIN [Suspect]
     Active Substance: GABAPENTIN
     Indication: Arthralgia
     Route: 065
  68. GABAPENTIN [Suspect]
     Active Substance: GABAPENTIN
     Route: 065
  69. GABAPENTIN [Suspect]
     Active Substance: GABAPENTIN
     Route: 065
  70. GABAPENTIN [Suspect]
     Active Substance: GABAPENTIN
     Route: 065
  71. IBUPROFEN [Suspect]
     Active Substance: IBUPROFEN
     Indication: Arthralgia
     Route: 065
  72. IBUPROFEN [Suspect]
     Active Substance: IBUPROFEN
     Indication: Product used for unknown indication
     Route: 065
  73. IBUPROFEN [Suspect]
     Active Substance: IBUPROFEN
     Route: 065
  74. IPRATROPIUM [Suspect]
     Active Substance: IPRATROPIUM
     Route: 065
  75. IPRATROPIUM [Suspect]
     Active Substance: IPRATROPIUM
     Route: 065
  76. IPRATROPIUM [Suspect]
     Active Substance: IPRATROPIUM
     Route: 065
  77. IPRATROPIUM [Suspect]
     Active Substance: IPRATROPIUM
     Route: 065
  78. IPRATROPIUM [Suspect]
     Active Substance: IPRATROPIUM
     Route: 065
  79. IPRATROPIUM [Suspect]
     Active Substance: IPRATROPIUM
     Route: 065
  80. IPRATROPIUM [Suspect]
     Active Substance: IPRATROPIUM
     Indication: Rhinitis
     Route: 045
  81. IPRATROPIUM [Suspect]
     Active Substance: IPRATROPIUM
     Route: 045
  82. IPRATROPIUM [Suspect]
     Active Substance: IPRATROPIUM
     Route: 045
  83. IPRATROPIUM [Suspect]
     Active Substance: IPRATROPIUM
     Route: 045
  84. IPRATROPIUM [Suspect]
     Active Substance: IPRATROPIUM
     Route: 045
  85. IPRATROPIUM [Suspect]
     Active Substance: IPRATROPIUM
     Route: 045
  86. IPRATROPIUM [Suspect]
     Active Substance: IPRATROPIUM
     Route: 045
  87. IPRATROPIUM [Suspect]
     Active Substance: IPRATROPIUM
     Route: 045
  88. IPRATROPIUM [Suspect]
     Active Substance: IPRATROPIUM
     Route: 045
  89. IPRATROPIUM [Suspect]
     Active Substance: IPRATROPIUM
     Route: 045
  90. IPRATROPIUM [Suspect]
     Active Substance: IPRATROPIUM
     Indication: Arthralgia
     Route: 065
  91. IPRATROPIUM [Suspect]
     Active Substance: IPRATROPIUM
     Indication: Product used for unknown indication
     Route: 045
  92. LATANOPROST [Suspect]
     Active Substance: LATANOPROST
     Indication: Glaucoma
     Route: 047
  93. LATANOPROST [Suspect]
     Active Substance: LATANOPROST
     Route: 047
  94. LATANOPROST [Suspect]
     Active Substance: LATANOPROST
     Route: 047
  95. LATANOPROST [Suspect]
     Active Substance: LATANOPROST
     Route: 047
  96. LATANOPROST [Suspect]
     Active Substance: LATANOPROST
     Route: 047
  97. LATANOPROST [Suspect]
     Active Substance: LATANOPROST
     Route: 047
  98. LATANOPROST [Suspect]
     Active Substance: LATANOPROST
     Route: 047
  99. LATANOPROST [Suspect]
     Active Substance: LATANOPROST
     Route: 047
  100. LATANOPROST [Suspect]
     Active Substance: LATANOPROST
     Route: 047
  101. LATANOPROST [Suspect]
     Active Substance: LATANOPROST
     Route: 047
  102. LATANOPROST [Suspect]
     Active Substance: LATANOPROST
     Route: 065
  103. NAPROXEN [Suspect]
     Active Substance: NAPROXEN
     Indication: Arthralgia
     Route: 065
  104. NICOTINAMIDE [Suspect]
     Active Substance: NIACINAMIDE
     Indication: Product used for unknown indication
     Route: 065
  105. ESTRADIOL [Suspect]
     Active Substance: ESTRADIOL
     Route: 062
  106. ESTRADIOL [Suspect]
     Active Substance: ESTRADIOL
     Indication: Menopausal symptoms
     Route: 065
  107. PREGABALIN [Suspect]
     Active Substance: PREGABALIN
     Route: 065
  108. PREGABALIN [Suspect]
     Active Substance: PREGABALIN
     Indication: Arthralgia
     Route: 065
  109. PREGABALIN [Suspect]
     Active Substance: PREGABALIN
     Route: 065
  110. PREGABALIN [Suspect]
     Active Substance: PREGABALIN
     Route: 065
  111. PSEUDOEPHEDRINE [Suspect]
     Active Substance: PSEUDOEPHEDRINE
     Indication: Product used for unknown indication
     Route: 065
  112. PSEUDOEPHEDRINE HYDROCHLORIDE [Suspect]
     Active Substance: PSEUDOEPHEDRINE HYDROCHLORIDE
     Indication: Product used for unknown indication
     Route: 065
  113. PSEUDOEPHEDRINE HYDROCHLORIDE [Suspect]
     Active Substance: PSEUDOEPHEDRINE HYDROCHLORIDE
     Route: 065
  114. PSEUDOEPHEDRINE HYDROCHLORIDE [Suspect]
     Active Substance: PSEUDOEPHEDRINE HYDROCHLORIDE
     Route: 065
  115. PYRIDOXINE HYDROCHLORIDE [Suspect]
     Active Substance: PYRIDOXINE HYDROCHLORIDE
     Indication: Product used for unknown indication
     Route: 065
  116. PYRIDOXINE HYDROCHLORIDE [Suspect]
     Active Substance: PYRIDOXINE HYDROCHLORIDE
     Route: 065
  117. PYRIDOXINE HYDROCHLORIDE [Suspect]
     Active Substance: PYRIDOXINE HYDROCHLORIDE
     Route: 065
  118. PYRIDOXINE HYDROCHLORIDE [Suspect]
     Active Substance: PYRIDOXINE HYDROCHLORIDE
     Route: 065
  119. RIBOFLAVIN [Suspect]
     Active Substance: RIBOFLAVIN
     Indication: Product used for unknown indication
     Route: 065
  120. TELMISARTAN [Suspect]
     Active Substance: TELMISARTAN
     Route: 065
  121. TELMISARTAN [Suspect]
     Active Substance: TELMISARTAN
     Indication: Glaucoma
     Route: 065
  122. TELMISARTAN [Suspect]
     Active Substance: TELMISARTAN
     Indication: Hypertension
     Route: 065
  123. THIAMINE HYDROCHLORIDE [Suspect]
     Active Substance: THIAMINE HYDROCHLORIDE
     Indication: Product used for unknown indication
     Route: 065
  124. THIAMINE HYDROCHLORIDE [Suspect]
     Active Substance: THIAMINE HYDROCHLORIDE
     Indication: Product used for unknown indication
     Route: 065
  125. VITAMIN C [Suspect]
     Active Substance: ASCORBIC ACID
     Indication: Product used for unknown indication
     Route: 065
  126. VITAMIN C [Suspect]
     Active Substance: ASCORBIC ACID
     Indication: Product used for unknown indication
     Route: 065
  127. VITAMIN A [Suspect]
     Active Substance: VITAMIN A
     Indication: Product used for unknown indication
     Route: 065
  128. VITAMIN B6 [Suspect]
     Active Substance: PYRIDOXINE HYDROCHLORIDE
     Indication: Product used for unknown indication
     Route: 065
  129. VITAMIN D3 [Suspect]
     Active Substance: CHOLECALCIFEROL
     Indication: Product used for unknown indication
     Route: 065
  130. VITAMIN D3 [Suspect]
     Active Substance: CHOLECALCIFEROL
     Route: 065
  131. VITAMIN D3 [Suspect]
     Active Substance: CHOLECALCIFEROL
     Route: 065
  132. VITAMIN D3 [Suspect]
     Active Substance: CHOLECALCIFEROL
     Route: 065
  133. VITAMINS NOS [Suspect]
     Active Substance: VITAMINS
     Indication: Product used for unknown indication
     Route: 065
  134. VITAMINS NOS [Suspect]
     Active Substance: VITAMINS
     Route: 065
  135. VITAMINS NOS [Suspect]
     Active Substance: VITAMINS
     Route: 065
  136. ZOPICLONE [Suspect]
     Active Substance: ZOPICLONE
     Route: 065
  137. ZOPICLONE [Suspect]
     Active Substance: ZOPICLONE
     Route: 065
  138. ZOPICLONE [Suspect]
     Active Substance: ZOPICLONE
     Indication: Arthralgia
     Route: 065
  139. ZOPICLONE [Suspect]
     Active Substance: ZOPICLONE
     Indication: Dyslipidaemia
     Route: 065
  140. ZOPICLONE [Suspect]
     Active Substance: ZOPICLONE
     Indication: Sinusitis
     Route: 065
  141. ZOPICLONE [Suspect]
     Active Substance: ZOPICLONE
     Route: 065
  142. ZOPICLONE [Suspect]
     Active Substance: ZOPICLONE
     Route: 065
  143. ZOPICLONE [Suspect]
     Active Substance: ZOPICLONE
     Route: 065
  144. ZOPICLONE [Suspect]
     Active Substance: ZOPICLONE
     Route: 065
  145. ZOPICLONE [Suspect]
     Active Substance: ZOPICLONE
     Indication: Insomnia
     Route: 048
  146. ACETAMINOPHEN [Concomitant]
     Active Substance: ACETAMINOPHEN
     Indication: Product used for unknown indication
     Route: 065
  147. AMOXICILLIN [Concomitant]
     Active Substance: AMOXICILLIN
     Indication: Product used for unknown indication
     Route: 065
  148. ATORVASTATIN CALCIUM [Concomitant]
     Active Substance: ATORVASTATIN CALCIUM
     Indication: Dyslipidaemia
     Route: 065
  149. CALCIUM CARBONATE [Concomitant]
     Active Substance: CALCIUM CARBONATE
     Indication: Product used for unknown indication
     Route: 065
  150. CALCIUM CARBONATE [Concomitant]
     Active Substance: CALCIUM CARBONATE
     Route: 065
  151. CHOLECALCIFEROL [Concomitant]
     Active Substance: CHOLECALCIFEROL
     Indication: Product used for unknown indication
     Route: 065
  152. CHOLECALCIFEROL [Concomitant]
     Active Substance: CHOLECALCIFEROL
     Indication: Product used for unknown indication
     Route: 065
  153. CLONAZEPAM [Concomitant]
     Active Substance: CLONAZEPAM
     Indication: Product used for unknown indication
     Route: 065
  154. DICLOFENAC [Concomitant]
     Active Substance: DICLOFENAC
     Indication: Product used for unknown indication
     Route: 065
  155. ESTRADIOL [Concomitant]
     Active Substance: ESTRADIOL
     Indication: Menopausal symptoms
     Route: 065
  156. ESTRADIOL [Concomitant]
     Active Substance: ESTRADIOL
     Route: 065
  157. IBUPROFEN [Concomitant]
     Active Substance: IBUPROFEN
     Indication: Product used for unknown indication
     Route: 065
  158. IBUPROFEN [Concomitant]
     Active Substance: IBUPROFEN
     Indication: Arthralgia
  159. IPRATROPIUM [Concomitant]
     Active Substance: IPRATROPIUM
     Indication: Rhinitis
     Route: 045
  160. IPRATROPIUM [Concomitant]
     Active Substance: IPRATROPIUM
     Route: 045
  161. IPRATROPIUM [Concomitant]
     Active Substance: IPRATROPIUM
     Route: 065
  162. LATANOPROST [Concomitant]
     Active Substance: LATANOPROST
     Indication: Glaucoma
     Route: 047
  163. LATANOPROST [Concomitant]
     Active Substance: LATANOPROST
     Route: 047
  164. LATANOPROST [Concomitant]
     Active Substance: LATANOPROST
     Route: 047
  165. LATANOPROST [Concomitant]
     Active Substance: LATANOPROST
     Route: 065
  166. NAPROXEN SODIUM [Concomitant]
     Active Substance: NAPROXEN SODIUM
     Indication: Arthralgia
     Route: 065
  167. OXYCODONE [Concomitant]
     Active Substance: OXYCODONE
     Indication: Product used for unknown indication
     Route: 065
  168. ACETAMINOPHEN\PSEUDOEPHEDRINE [Concomitant]
     Active Substance: ACETAMINOPHEN\PSEUDOEPHEDRINE
     Indication: Product used for unknown indication
     Route: 065
  169. PYRIDOXINE [Concomitant]
     Active Substance: PYRIDOXINE
     Indication: Product used for unknown indication
     Route: 065
  170. PYRIDOXINE [Concomitant]
     Active Substance: PYRIDOXINE
     Route: 065
  171. PYRIDOXINE [Concomitant]
     Active Substance: PYRIDOXINE
     Route: 065
  172. TELMISARTAN [Concomitant]
     Active Substance: TELMISARTAN
     Indication: Hypertension
     Route: 065
  173. TELMISARTAN [Concomitant]
     Active Substance: TELMISARTAN
     Route: 065
  174. VITAMINS NOS [Concomitant]
     Active Substance: VITAMINS
     Indication: Product used for unknown indication
     Route: 065

REACTIONS (8)
  - Haemoglobin decreased [Recovered/Resolved]
  - Nikolsky^s sign positive [Recovered/Resolved]
  - Rash papular [Recovered/Resolved]
  - Rash erythematous [Recovered/Resolved]
  - Epidermal necrosis [Recovered/Resolved]
  - Toxic epidermal necrolysis [Recovered/Resolved]
  - Product use in unapproved indication [Unknown]
  - Off label use [Unknown]
